FAERS Safety Report 11321356 (Version 2)
Quarter: 2015Q3

REPORT INFORMATION
  Report Type: Spontaneous
  Country: US (occurrence: US)
  Receive Date: 20150729
  Receipt Date: 20150925
  Transmission Date: 20151125
  Serious: No
  Sender: FDA-Public Use
  Company Number: US-LEO PHARMA-235876

PATIENT
  Age: 68 Year
  Sex: Male

DRUGS (1)
  1. PICATO [Suspect]
     Active Substance: INGENOL MEBUTATE
     Indication: ACTINIC KERATOSIS
     Dosage: 2 TUBES DAILY
     Route: 061
     Dates: start: 20150718, end: 20150720

REACTIONS (5)
  - Swelling [Recovered/Resolved]
  - Drug administered at inappropriate site [Unknown]
  - Incorrect dose administered [Unknown]
  - Drug administration error [Unknown]
  - Eyelid oedema [Recovered/Resolved]

NARRATIVE: CASE EVENT DATE: 20150721
